FAERS Safety Report 4302949-7 (Version None)
Quarter: 2004Q1

REPORT INFORMATION
  Report Type: 
  Country: None (occurrence: None)
  Receive Date: 20040126
  Receipt Date: 20030925
  Transmission Date: 20041129
  Serious: No
  Sender: FDA-Public Use
  Company Number: USA030948274

PATIENT
  Age: 13 Year
  Sex: Male

DRUGS (2)
  1. STRATTERA [Suspect]
     Dosage: 40- MG/DAY
     Dates: start: 20030801
  2. DEXEDRINE (DEXAMPETAMINE SULFATE) [Concomitant]

REACTIONS (7)
  - ANGER [None]
  - DISTURBANCE IN ATTENTION [None]
  - EATING DISORDER [None]
  - EMOTIONAL DISTRESS [None]
  - MOOD SWINGS [None]
  - NERVOUSNESS [None]
  - PSYCHOMOTOR HYPERACTIVITY [None]
